FAERS Safety Report 10179351 (Version 1)
Quarter: 2014Q2

REPORT INFORMATION
  Report Type: Spontaneous
  Country: ID (occurrence: ID)
  Receive Date: 20140519
  Receipt Date: 20140519
  Transmission Date: 20141212
  Serious: Yes (Disabling)
  Sender: FDA-Public Use
  Company Number: ID-ASTRAZENECA-2014SE31230

PATIENT
  Age: 43 Year
  Sex: Male

DRUGS (1)
  1. NAROPIN [Suspect]
     Dosage: 7.5 MG/ML (0.75%) WAS DILUTED UP TO 0.25%
     Route: 008

REACTIONS (3)
  - Paralysis [Unknown]
  - Dysuria [Unknown]
  - Gastrointestinal motility disorder [Unknown]
